FAERS Safety Report 8502290-2 (Version None)
Quarter: 2012Q3

REPORT INFORMATION
  Report Type: 
  Country: None (occurrence: None)
  Receive Date: 20120711
  Receipt Date: 20110915
  Transmission Date: 20120928
  Serious: No
  Sender: FDA-Public Use
  Company Number: US-COVIDIEN/TYCO HEALTHCARE/MALLINCKRODT-T201101849

PATIENT
  Age: 49 Year
  Sex: Female
  Weight: 56.236 kg

DRUGS (6)
  1. OXYCODONE HCL [Suspect]
     Indication: BACK PAIN
     Dosage: 15 MG, PRN
     Dates: start: 20110801
  2. SOMA [Concomitant]
     Indication: MUSCLE SPASMS
     Dosage: 2 TABS PRN
     Dates: start: 20020101
  3. OXYCODONE HCL [Suspect]
     Dosage: 3 TABLETS Q 4 HOURS
     Route: 048
     Dates: start: 20110801
  4. HYDROCODONE BITARTRATE + ACETAMINOPHEN [Suspect]
     Dosage: 3 TO 4 TIMES A DAY
     Route: 048
     Dates: start: 20110909
  5. OXYCODONE HCL [Suspect]
     Dosage: 45 MG Q 6 HOURS
     Route: 048
     Dates: start: 20110916
  6. OXYCODONE HCL [Suspect]
     Dosage: UNK

REACTIONS (4)
  - FATIGUE [None]
  - TREATMENT NONCOMPLIANCE [None]
  - WITHDRAWAL SYNDROME [None]
  - DRUG INEFFECTIVE [None]
